FAERS Safety Report 7457208-0 (Version None)
Quarter: 2011Q2

REPORT INFORMATION
  Report Type: 
  Country: None (occurrence: None)
  Receive Date: 20110504
  Receipt Date: 20110419
  Transmission Date: 20111010
  Serious: Yes (Hospitalization)
  Sender: FDA-Public Use
  Company Number: IN-MYLANLABS-2011S1008319

PATIENT
  Age: 42 Year
  Sex: Male

DRUGS (8)
  1. CITALOPRAM [Interacting]
     Route: 065
  2. PROPRANOLOL [Suspect]
  3. ATORVASTATIN [Interacting]
     Indication: DYSLIPIDAEMIA
     Route: 065
  4. QUETIAPINE [Interacting]
     Route: 065
  5. ASPIRIN [Interacting]
     Indication: DEEP VEIN THROMBOSIS
     Route: 065
  6. WARFARIN [Interacting]
     Indication: DEEP VEIN THROMBOSIS
     Route: 065
  7. FENOFIBRATE [Interacting]
     Indication: DYSLIPIDAEMIA
     Route: 065
  8. DICLOFENAC [Interacting]
     Indication: PAIN
     Route: 065

REACTIONS (3)
  - SPINAL HAEMATOMA [None]
  - DRUG INTERACTION [None]
  - HAEMORRHAGE [None]
